FAERS Safety Report 11095409 (Version 1)
Quarter: 2015Q2

REPORT INFORMATION
  Report Type: Report from Study
  Country: SA (occurrence: SA)
  Receive Date: 20150506
  Receipt Date: 20150506
  Transmission Date: 20150821
  Serious: Yes (Hospitalization)
  Sender: FDA-Public Use
  Company Number: SA-MYLANLABS-2015M1015049

PATIENT

DRUGS (3)
  1. ADRIAMYCIN [Suspect]
     Active Substance: DOXORUBICIN HYDROCHLORIDE
     Indication: OVARIAN CANCER
     Route: 033
  2. LOSARTAN [Suspect]
     Active Substance: LOSARTAN
     Indication: HYPERTENSION
     Route: 065
  3. CISPLATIN HOSPIRA [Suspect]
     Active Substance: CISPLATIN
     Indication: OVARIAN CANCER
     Route: 033

REACTIONS (1)
  - Renal injury [Recovered/Resolved]
